FAERS Safety Report 9708270 (Version 2)
Quarter: 2013Q4

REPORT INFORMATION
  Report Type: Report from Study
  Country: US (occurrence: US)
  Receive Date: 20131125
  Receipt Date: 20131213
  Transmission Date: 20140711
  Serious: Yes (Hospitalization)
  Sender: FDA-Public Use
  Company Number: US-ACTELION-A-US2013-91365

PATIENT
  Age: 45 Year
  Sex: Female

DRUGS (7)
  1. TRACLEER [Suspect]
     Indication: PULMONARY ARTERIAL HYPERTENSION
     Dosage: UNK
     Route: 048
  2. ADCIRCA [Concomitant]
  3. COUMADIN [Concomitant]
  4. REMODULIN [Concomitant]
     Route: 058
  5. REMODULIN [Concomitant]
     Dosage: UNK
     Route: 042
  6. PREDNISONE [Concomitant]
  7. AMIODARONE [Concomitant]

REACTIONS (9)
  - Septic shock [Recovering/Resolving]
  - Dyspnoea [Unknown]
  - Clostridium difficile colitis [Recovering/Resolving]
  - Sarcoidosis [Recovering/Resolving]
  - Concomitant disease aggravated [Recovering/Resolving]
  - Cardiac failure acute [Recovering/Resolving]
  - Atrial fibrillation [Recovering/Resolving]
  - Atrial tachycardia [Recovering/Resolving]
  - Thrombocytopenia [Recovering/Resolving]
